FAERS Safety Report 9052639 (Version 2)
Quarter: 2013Q1

REPORT INFORMATION
  Report Type: Spontaneous
  Country: US (occurrence: US)
  Receive Date: 20130207
  Receipt Date: 20130215
  Transmission Date: 20140127
  Serious: Yes (Disabling)
  Sender: FDA-Public Use
  Company Number: US-PERRIGO-13US000353

PATIENT
  Age: 56 None
  Sex: Female
  Weight: 47.62 kg

DRUGS (4)
  1. MINOXIDIL 2%  WOMEN 202 [Suspect]
     Indication: MADAROSIS
     Dosage: ONE APPLICATION TO EYEBROWS, QD
     Route: 061
     Dates: start: 20121213, end: 20121215
  2. MINOXIDIL 2%  WOMEN 202 [Suspect]
     Dosage: ONE APPLICATION TO EYEBROWS, SINGLE
     Route: 061
     Dates: start: 20130102, end: 20130102
  3. MINOXIDIL 2%  WOMEN 202 [Suspect]
     Dosage: ONCE OR TWICE A DAY
     Route: 061
     Dates: start: 2005, end: 20121212
  4. BABY ASPIRIN [Concomitant]
     Indication: ROUTINE HEALTH MAINTENANCE
     Route: 048

REACTIONS (12)
  - Eye swelling [Recovered/Resolved]
  - Application site swelling [Recovered/Resolved]
  - Skin exfoliation [Recovered/Resolved]
  - Dry skin [Not Recovered/Not Resolved]
  - Skin wrinkling [Recovered/Resolved]
  - Rash [Recovered/Resolved]
  - Urticaria [Recovered/Resolved]
  - Erythema [Recovering/Resolving]
  - Pruritus [Not Recovered/Not Resolved]
  - Off label use [Recovered/Resolved]
  - Drug administered at inappropriate site [Recovered/Resolved]
  - Accidental exposure to product [Recovered/Resolved]
